FAERS Safety Report 19286809 (Version 1)
Quarter: 2021Q2

REPORT INFORMATION
  Report Type: Spontaneous
  Country: GR (occurrence: GR)
  Receive Date: 20210521
  Receipt Date: 20210521
  Transmission Date: 20210717
  Serious: Yes (Other)
  Sender: FDA-Public Use
  Company Number: GR-UNIQUE PHARMACEUTICAL LABORATORIES-20210500039

PATIENT

DRUGS (2)
  1. FLUCONAZOLE TABLETS USP 100 MG [Suspect]
     Active Substance: FLUCONAZOLE
     Indication: ORAL CANDIDIASIS
     Dosage: UNKNOWN DOSE
  2. FLUCONAZOLE TABLETS USP 100 MG [Suspect]
     Active Substance: FLUCONAZOLE
     Dosage: UNKNOWN DOSE

REACTIONS (1)
  - Generalised bullous fixed drug eruption [Not Recovered/Not Resolved]
